FAERS Safety Report 10297160 (Version 1)
Quarter: 2014Q3

REPORT INFORMATION
  Report Type: Spontaneous
  Country: US (occurrence: None)
  Receive Date: 20140708
  Receipt Date: 20140708
  Transmission Date: 20150326
  Serious: Yes (Life-Threatening)
  Sender: FDA-Public Use
  Company Number: None

PATIENT
  Age: 59 Year
  Sex: Male
  Weight: 65 kg

DRUGS (1)
  1. RAMUCIRUMAB [Suspect]
     Active Substance: RAMUCIRUMAB
     Indication: METASTATIC GASTRIC CANCER
     Dosage: 8 MG, EVERY 14 DAYS, IV
     Route: 042
     Dates: start: 20140610

REACTIONS (9)
  - Pulmonary embolism [None]
  - Tremor [None]
  - Pneumonia [None]
  - Transient ischaemic attack [None]
  - Heart rate irregular [None]
  - Grip strength decreased [None]
  - Abasia [None]
  - Computerised tomogram abnormal [None]
  - Muscular weakness [None]

NARRATIVE: CASE EVENT DATE: 20140621
